FAERS Safety Report 21700586 (Version 1)
Quarter: 2022Q4

REPORT INFORMATION
  Report Type: Spontaneous
  Country: US (occurrence: US)
  Receive Date: 20221208
  Receipt Date: 20221208
  Transmission Date: 20230113
  Serious: No
  Sender: FDA-Public Use
  Company Number: US-BIOGEN-2022BI01087531

PATIENT
  Age: 44 Year
  Sex: Female

DRUGS (1)
  1. TYSABRI [Suspect]
     Active Substance: NATALIZUMAB
     Indication: Multiple sclerosis
     Route: 050
     Dates: start: 20211210, end: 20220603

REACTIONS (5)
  - Nasopharyngitis [Not Recovered/Not Resolved]
  - Optic neuritis [Unknown]
  - Rash [Not Recovered/Not Resolved]
  - Fatigue [Not Recovered/Not Resolved]
  - Influenza [Unknown]

NARRATIVE: CASE EVENT DATE: 20211210
